FAERS Safety Report 15014714 (Version 1)
Quarter: 2018Q2

REPORT INFORMATION
  Report Type: Report from Study
  Country: FR (occurrence: FR)
  Receive Date: 20180615
  Receipt Date: 20180615
  Transmission Date: 20180711
  Serious: Yes (Other)
  Sender: FDA-Public Use
  Company Number: FR-ROCHE-2139088

PATIENT
  Age: 65 Year
  Sex: Female
  Weight: 94 kg

DRUGS (8)
  1. BORTEZOMIB [Suspect]
     Active Substance: BORTEZOMIB
     Indication: WALDENSTROM^S MACROGLOBULINAEMIA
     Dosage: DOSE OF LAST ADMINISTRATION  30/FEB/2018
     Route: 058
     Dates: start: 20171115
  2. VALGANCICLOVIR. [Concomitant]
     Active Substance: VALGANCICLOVIR
     Dosage: BY MOUTH
     Route: 065
     Dates: start: 20171115
  3. COTAREG [Concomitant]
     Active Substance: HYDROCHLOROTHIAZIDE\VALSARTAN
     Indication: HYPERTENSION
     Dosage: BY MOUTH
     Route: 065
  4. RITUXIMAB. [Suspect]
     Active Substance: RITUXIMAB
     Indication: WALDENSTROM^S MACROGLOBULINAEMIA
     Dosage: DOSE OF LAST ADMINISTRATION  15/NOV/2018
     Route: 042
     Dates: start: 20171115
  5. RITUXIMAB. [Suspect]
     Active Substance: RITUXIMAB
     Indication: WALDENSTROM^S MACROGLOBULINAEMIA
     Dosage: DOSE OF LAST ADMINISTRATION  6/FEB/2018
     Route: 058
     Dates: start: 20171212
  6. DEXAMETHASONE. [Suspect]
     Active Substance: DEXAMETHASONE
     Indication: WALDENSTROM^S MACROGLOBULINAEMIA
     Dosage: DOSE OF LAST ADMINISTRATION  6/FEB/2018
     Route: 048
     Dates: start: 20171115
  7. CYCLOPHOSPHAMIDE. [Suspect]
     Active Substance: CYCLOPHOSPHAMIDE
     Indication: WALDENSTROM^S MACROGLOBULINAEMIA
     Dosage: DOSE OF LAST ADMINISTRATION  6/FEB/2018
     Route: 048
     Dates: start: 20171115
  8. BACTRIM [Concomitant]
     Active Substance: SULFAMETHOXAZOLE\TRIMETHOPRIM
     Dosage: BY MOUTH
     Route: 065
     Dates: start: 20171115

REACTIONS (1)
  - Squamous cell carcinoma [Recovered/Resolved]

NARRATIVE: CASE EVENT DATE: 20180214
